FAERS Safety Report 8546966-X (Version None)
Quarter: 2012Q3

REPORT INFORMATION
  Report Type: 
  Country: None (occurrence: None)
  Receive Date: 20120727
  Receipt Date: 20120305
  Transmission Date: 20120928
  Serious: No
  Sender: FDA-Public Use
  Company Number: US-ASTRAZENECA-2012SE15184

PATIENT
  Age: 58 Year
  Sex: Female
  Weight: 95.3 kg

DRUGS (5)
  1. SEROQUEL [Suspect]
     Indication: DEPRESSION
     Route: 048
  2. CARBAMAZEPINE [Concomitant]
  3. SEROQUEL [Suspect]
     Route: 048
  4. CRESTOR [Suspect]
     Route: 048
  5. PAROXETINE HCL [Concomitant]

REACTIONS (6)
  - MIDDLE INSOMNIA [None]
  - FEELING ABNORMAL [None]
  - HEPATIC ENZYME INCREASED [None]
  - SLEEP DISORDER [None]
  - WEIGHT INCREASED [None]
  - FATIGUE [None]
